FAERS Safety Report 9706569 (Version 1)
Quarter: 2013Q4

REPORT INFORMATION
  Report Type: Spontaneous
  Country: US (occurrence: US)
  Receive Date: 20131125
  Receipt Date: 20131125
  Transmission Date: 20140711
  Serious: Yes (Hospitalization)
  Sender: FDA-Public Use
  Company Number: US-SHIRE-ALL1-2013-08104

PATIENT
  Sex: Male

DRUGS (1)
  1. LIALDA [Suspect]
     Indication: PRODUCT USED FOR UNKNOWN INDICATION
     Dosage: 4.8 G, 1X/DAY:QD
     Route: 048
     Dates: end: 201311

REACTIONS (1)
  - Pneumonitis [Recovering/Resolving]
